FAERS Safety Report 7003477-0 (Version None)
Quarter: 2010Q3

REPORT INFORMATION
  Report Type: 
  Country: None (occurrence: None)
  Receive Date: 20100920
  Receipt Date: 20100908
  Transmission Date: 20110219
  Serious: Yes (Disabling)
  Sender: FDA-Public Use
  Company Number: FR-AMGEN-QUU437500

PATIENT
  Sex: Male

DRUGS (2)
  1. ENBREL [Suspect]
     Indication: ANKYLOSING SPONDYLITIS
     Route: 058
     Dates: start: 20040101, end: 20090101
  2. ENBREL [Suspect]
     Indication: PSORIATIC ARTHROPATHY
     Route: 058
     Dates: start: 20090101

REACTIONS (5)
  - BRONCHIAL DISORDER [None]
  - COUGH [None]
  - DYSPNOEA [None]
  - ECZEMA [None]
  - OROPHARYNGEAL DISCOMFORT [None]
